FAERS Safety Report 7462904-5 (Version None)
Quarter: 2011Q2

REPORT INFORMATION
  Report Type: 
  Country: None (occurrence: None)
  Receive Date: 20110506
  Receipt Date: 20110425
  Transmission Date: 20111010
  Serious: Yes (Hospitalization, Other)
  Sender: FDA-Public Use
  Company Number: US-ABBOTT-11P-163-0721454-00

PATIENT
  Sex: Female
  Weight: 74.91 kg

DRUGS (6)
  1. LUPRON DEPOT [Suspect]
     Indication: ENDOMETRIOSIS
     Dates: start: 20110208, end: 20110301
  2. PERCOCET [Concomitant]
     Indication: FIBROMYALGIA
     Dates: start: 20100301
  3. LUPRON DEPOT [Suspect]
     Dates: start: 20110401
  4. FENTANYL [Concomitant]
     Indication: FIBROMYALGIA
     Dosage: PATCH
     Dates: start: 20100301
  5. LUPRON DEPOT [Suspect]
     Indication: ENDOMETRIOSIS
     Dates: start: 20060101, end: 20070101
  6. NORETHINDRONE [Concomitant]
     Indication: HORMONE THERAPY
     Dates: start: 20110201

REACTIONS (7)
  - DRUG INEFFECTIVE [None]
  - METRORRHAGIA [None]
  - MENSTRUATION IRREGULAR [None]
  - FIBROMYALGIA [None]
  - UTERINE LEIOMYOMA [None]
  - VAGINAL HAEMORRHAGE [None]
  - ENDOMETRIOSIS [None]
